FAERS Safety Report 17860828 (Version 1)
Quarter: 2020Q2

REPORT INFORMATION
  Report Type: Spontaneous
  Country: PL (occurrence: PL)
  Receive Date: 20200604
  Receipt Date: 20200604
  Transmission Date: 20200714
  Serious: Yes (Other)
  Sender: FDA-Public Use
  Company Number: PL-ABBVIE-20K-129-3428029-00

PATIENT
  Age: 68 Year
  Sex: Female
  Weight: 60 kg

DRUGS (1)
  1. HUMIRA [Suspect]
     Active Substance: ADALIMUMAB
     Indication: PSORIASIS
     Route: 058
     Dates: start: 20170623, end: 20170919

REACTIONS (3)
  - Hypoaesthesia [Unknown]
  - Pain [Unknown]
  - Blister [Unknown]

NARRATIVE: CASE EVENT DATE: 201707
